FAERS Safety Report 7475732-1 (Version None)
Quarter: 2011Q2

REPORT INFORMATION
  Report Type: 
  Country: None (occurrence: None)
  Receive Date: 20110510
  Receipt Date: 20110510
  Transmission Date: 20111010
  Serious: Yes (Other)
  Sender: FDA-Public Use
  Company Number: None

PATIENT
  Age: 67 Year
  Sex: Female
  Weight: 49.8957 kg

DRUGS (4)
  1. OMEPRAZOLE [Suspect]
     Indication: GASTRODUODENAL ULCER
     Dosage: 40MG OR 20MG 2X DAILY PO
     Route: 048
     Dates: start: 20070101, end: 20110201
  2. LYRICA [Suspect]
     Indication: NECK PAIN
     Dosage: 75MG 1X DAILY PO
     Route: 048
     Dates: start: 20061001, end: 20080301
  3. LYRICA [Suspect]
     Indication: BACK PAIN
     Dosage: 75MG 1X DAILY PO
     Route: 048
     Dates: start: 20061001, end: 20080301
  4. LYRICA [Suspect]
     Indication: MUSCULOSKELETAL PAIN
     Dosage: 75MG 1X DAILY PO
     Route: 048
     Dates: start: 20061001, end: 20080301

REACTIONS (14)
  - THROAT IRRITATION [None]
  - SWELLING [None]
  - WEIGHT INCREASED [None]
  - DECREASED APPETITE [None]
  - COUGH [None]
  - APHAGIA [None]
  - WEIGHT DECREASED [None]
  - RENAL IMPAIRMENT [None]
  - NAUSEA [None]
  - THROAT TIGHTNESS [None]
  - CHOKING SENSATION [None]
  - DIZZINESS [None]
  - GASTRODUODENAL ULCER [None]
  - EYE SWELLING [None]
